FAERS Safety Report 8286491-7 (Version None)
Quarter: 2012Q2

REPORT INFORMATION
  Report Type: 
  Country: None (occurrence: None)
  Receive Date: 20120416
  Receipt Date: 20120410
  Transmission Date: 20120825
  Serious: Yes (Other)
  Sender: FDA-Public Use
  Company Number: US-PFIZER INC-2012058366

PATIENT
  Sex: Male

DRUGS (5)
  1. LIPITOR [Suspect]
     Dosage: UNK
     Dates: start: 20080101
  2. LIPITOR [Suspect]
     Indication: BLOOD CHOLESTEROL INCREASED
     Dosage: UNK
     Route: 048
  3. LIPITOR [Suspect]
     Dosage: 80 MG, PER DAY
  4. ZOCOR [Suspect]
     Dosage: UNK
  5. GLUCOVANCE [Concomitant]
     Indication: DIABETES MELLITUS
     Dosage: UNK

REACTIONS (8)
  - DRUG INTOLERANCE [None]
  - MYALGIA [None]
  - LOW DENSITY LIPOPROTEIN INCREASED [None]
  - RENAL IMPAIRMENT [None]
  - VASCULAR INSUFFICIENCY [None]
  - ASTHENIA [None]
  - BLOOD CHOLESTEROL INCREASED [None]
  - MUSCULAR WEAKNESS [None]
